FAERS Safety Report 4604994-0 (Version None)
Quarter: 2005Q2

REPORT INFORMATION
  Report Type: 
  Country: None (occurrence: None)
  Receive Date: 20050217
  Receipt Date: 20041116
  Transmission Date: 20051028
  Serious: No
  Sender: FDA-Public Use
  Company Number: S04-USA-06764-01

PATIENT
  Age: 86 Year
  Sex: Female
  Weight: 56.246 kg

DRUGS (15)
  1. NAMENDA [Suspect]
     Indication: DEMENTIA ALZHEIMER'S TYPE
     Dosage: 10 MG BID PO
     Route: 048
     Dates: start: 20040101, end: 20040101
  2. NAMENDA [Suspect]
     Indication: DEMENTIA ALZHEIMER'S TYPE
     Dosage: 5 MG QD PO
     Route: 048
     Dates: start: 20040801, end: 20040101
  3. NAMENDA [Suspect]
     Indication: DEMENTIA ALZHEIMER'S TYPE
     Dosage: 5 MG BID PO
     Route: 048
     Dates: start: 20040101, end: 20040101
  4. NAMENDA [Suspect]
     Indication: DEMENTIA ALZHEIMER'S TYPE
     Dosage: 15 MG QD PO
     Route: 048
     Dates: start: 20040101, end: 20040101
  5. PROCARDIA XL [Concomitant]
  6. WELLBUTRIN XL [Concomitant]
  7. LEVOXYL [Concomitant]
  8. ARICEPT [Concomitant]
  9. PRILOSEC [Concomitant]
  10. PREDNISONE [Concomitant]
  11. IMURAN [Concomitant]
  12. GLUCOPHAGE [Concomitant]
  13. LEXAPRO [Concomitant]
  14. FOLATE [Concomitant]
  15. CLARITIN [Concomitant]

REACTIONS (1)
  - RENAL FAILURE ACUTE [None]
